FAERS Safety Report 19614027 (Version 1)
Quarter: 2021Q3

REPORT INFORMATION
  Report Type: Spontaneous
  Country: US (occurrence: US)
  Receive Date: 20210727
  Receipt Date: 20210727
  Transmission Date: 20211014
  Serious: Yes (Death)
  Sender: FDA-Public Use
  Company Number: US-DRREDDYS-SPO/USA/21/0138251

PATIENT
  Age: 1 Year
  Sex: Female

DRUGS (2)
  1. VIGABATRIN. [Suspect]
     Active Substance: VIGABATRIN
     Indication: PRODUCT USED FOR UNKNOWN INDICATION
     Route: 048
  2. VIGABATRIN. [Suspect]
     Active Substance: VIGABATRIN

REACTIONS (1)
  - Death [Fatal]
